FAERS Safety Report 10983085 (Version 1)
Quarter: 2015Q2

REPORT INFORMATION
  Report Type: Spontaneous
  Country: US (occurrence: None)
  Receive Date: 20150402
  Receipt Date: 20150402
  Transmission Date: 20150821
  Serious: Yes (Disabling)
  Sender: FDA-Public Use
  Company Number: None

PATIENT
  Age: 59 Year
  Sex: Female
  Weight: 58.06 kg

DRUGS (7)
  1. LEVOTHYROXINE [Concomitant]
     Active Substance: LEVOTHYROXINE
  2. VITAMIN D3 [Concomitant]
     Active Substance: CHOLECALCIFEROL
  3. VITAMIN E [Concomitant]
     Active Substance: .ALPHA.-TOCOPHEROL
  4. FISH OIL [Concomitant]
     Active Substance: FISH OIL
  5. BACTRIM [Suspect]
     Active Substance: SULFAMETHOXAZOLE\TRIMETHOPRIM
     Indication: ANIMAL BITE
     Route: 048
     Dates: start: 20150323, end: 20150330
  6. FLAXSEED [Concomitant]
     Active Substance: FLAX SEED
  7. VITAMIN B12 [Concomitant]
     Active Substance: CYANOCOBALAMIN

REACTIONS (4)
  - Gait disturbance [None]
  - Pain in extremity [None]
  - Headache [None]
  - Arthralgia [None]

NARRATIVE: CASE EVENT DATE: 20150330
